FAERS Safety Report 19041311 (Version 2)
Quarter: 2025Q3

REPORT INFORMATION
  Report Type: Spontaneous
  Country: US (occurrence: US)
  Receive Date: 20210323
  Receipt Date: 20250804
  Transmission Date: 20251021
  Serious: No
  Sender: QILU PHARMACEUTICAL
  Company Number: US-QILU PHARMACEUTICAL CO.LTD.-QLU-000133-2020

PATIENT
  Age: 35 Year
  Sex: Female
  Weight: 56.69 kg

DRUGS (3)
  1. OLANZAPINE [Suspect]
     Active Substance: OLANZAPINE
     Indication: Bipolar II disorder
     Dosage: 5 MILLIGRAM PER DAY (QD)
     Route: 048
     Dates: start: 20200401, end: 20200422
  2. CLONAZEPAM [Concomitant]
     Active Substance: CLONAZEPAM
     Indication: Product used for unknown indication
     Route: 065
  3. BUPROPION [Concomitant]
     Active Substance: BUPROPION
     Indication: Product used for unknown indication
     Route: 065

REACTIONS (5)
  - Skin odour abnormal [Recovered/Resolved]
  - Hyperhidrosis [Recovered/Resolved]
  - Product substitution issue [Unknown]
  - Product odour abnormal [Recovered/Resolved]
  - Suspected product contamination [Recovered/Resolved]

NARRATIVE: CASE EVENT DATE: 20200401
